FAERS Safety Report 5601760-4 (Version None)
Quarter: 2008Q1

REPORT INFORMATION
  Report Type: 
  Country: None (occurrence: None)
  Receive Date: 20080124
  Receipt Date: 20080116
  Transmission Date: 20080703
  Serious: Yes (Life-Threatening, Hospitalization)
  Sender: FDA-Public Use
  Company Number: US-GENENTECH-254477

PATIENT
  Sex: Male
  Weight: 73 kg

DRUGS (17)
  1. BEVACIZUMAB [Suspect]
     Indication: METASTATIC GASTRIC CANCER
     Dosage: 10 MG/KG, Q3W
     Route: 040
     Dates: start: 20071221
  2. CISPLATIN [Suspect]
     Indication: METASTATIC GASTRIC CANCER
     Dosage: 25 MG/M2, D1 + D8 OF 21D CYCLE
     Route: 040
     Dates: start: 20071221
  3. IRINOTECAN [Suspect]
     Indication: METASTATIC GASTRIC CANCER
     Dosage: 50 MG/M2, D1 + D8 OF 21D CYCLE
     Route: 040
     Dates: start: 20071221
  4. DOCETAXEL [Suspect]
  5. DIGOXIN [Concomitant]
     Indication: HYPOTENSION
  6. ESMOLOL HCL [Concomitant]
     Indication: HYPOTENSION
  7. LOPRESSOR [Concomitant]
     Indication: HYPOTENSION
  8. CALCIUM CARBONATE [Concomitant]
     Indication: DRUG USE FOR UNKNOWN INDICATION
  9. DOCUSATE SODIUM [Concomitant]
     Indication: DRUG USE FOR UNKNOWN INDICATION
  10. PROCHLORPERAZINE [Concomitant]
     Indication: DRUG USE FOR UNKNOWN INDICATION
  11. WARFARIN SODIUM [Concomitant]
     Indication: DRUG USE FOR UNKNOWN INDICATION
  12. DEXAMETHASONE TAB [Concomitant]
     Indication: DRUG USE FOR UNKNOWN INDICATION
  13. LEVOFLOXACIN [Concomitant]
     Indication: DRUG USE FOR UNKNOWN INDICATION
  14. LOPERAMIDE HCL [Concomitant]
     Indication: DRUG USE FOR UNKNOWN INDICATION
  15. OXYCODONE [Concomitant]
     Indication: DRUG USE FOR UNKNOWN INDICATION
  16. SENNOSIDES [Concomitant]
     Indication: DRUG USE FOR UNKNOWN INDICATION
  17. ONDANSETRON HCL [Concomitant]
     Indication: DRUG USE FOR UNKNOWN INDICATION

REACTIONS (1)
  - OESOPHAGITIS [None]
